FAERS Safety Report 9037735 (Version 1)
Quarter: 2013Q1

REPORT INFORMATION
  Report Type: Report from Study
  Country: US (occurrence: US)
  Receive Date: 20130129
  Receipt Date: 20130129
  Transmission Date: 20140127
  Serious: Yes (Other)
  Sender: FDA-Public Use
  Company Number: US-ABBOTT-12P-163-0899759-00

PATIENT
  Age: 51 Year
  Sex: Female

DRUGS (8)
  1. HUMIRA 40 MG/0.8 ML PEN [Suspect]
     Indication: CROHN^S DISEASE
  2. PROZAC [Concomitant]
     Indication: ANTIDEPRESSANT THERAPY
  3. WELLBUTRIN [Concomitant]
     Indication: ANTIDEPRESSANT THERAPY
  4. HYOMAX [Concomitant]
     Indication: MUSCLE RELAXANT THERAPY
     Dosage: 2 IN 1 DAYS, AS REQUIRED
  5. SYNTHROID [Concomitant]
     Indication: PRODUCT USED FOR UNKNOWN INDICATION
     Dosage: IN THE MORNING
  6. KLONOPIN [Concomitant]
     Indication: PRODUCT USED FOR UNKNOWN INDICATION
     Dosage: AT NIGHT
  7. PROMETRIUM [Concomitant]
     Indication: MENOPAUSE
  8. CLIMARA [Concomitant]
     Indication: MENOPAUSE
     Dosage: PATCH

REACTIONS (10)
  - Hip arthroplasty [Unknown]
  - Cholecystectomy [Unknown]
  - Spinal disorder [Not Recovered/Not Resolved]
  - Intervertebral disc protrusion [Not Recovered/Not Resolved]
  - Nerve compression [Not Recovered/Not Resolved]
  - Myalgia [Not Recovered/Not Resolved]
  - Hyperaesthesia [Not Recovered/Not Resolved]
  - Fistula [Not Recovered/Not Resolved]
  - Pain [Not Recovered/Not Resolved]
  - Muscle spasms [Not Recovered/Not Resolved]
